FAERS Safety Report 8446866-X (Version None)
Quarter: 2012Q2

REPORT INFORMATION
  Report Type: 
  Country: None (occurrence: None)
  Receive Date: 20120612
  Receipt Date: 20120612
  Transmission Date: 20120825
  Serious: Yes (Death)
  Sender: FDA-Public Use
  Company Number: None

PATIENT
  Age: 51 Year
  Sex: Female

DRUGS (2)
  1. BUPIVACAINE HCL [Suspect]
     Indication: PAIN MANAGEMENT
     Dosage: ONCE CERVICAL EPIDURAL
     Route: 008
     Dates: start: 20120605
  2. SOLU-MEDROL [Concomitant]

REACTIONS (6)
  - UNRESPONSIVE TO STIMULI [None]
  - NAUSEA [None]
  - PULSE ABSENT [None]
  - VOMITING [None]
  - HYPOAESTHESIA [None]
  - APNOEA [None]
